FAERS Safety Report 4716048-3 (Version None)
Quarter: 2005Q3

REPORT INFORMATION
  Report Type: 
  Country: None (occurrence: None)
  Receive Date: 20050718
  Receipt Date: 20050609
  Transmission Date: 20060218
  Serious: Yes (Hospitalization)
  Sender: FDA-Public Use
  Company Number: FR-BRISTOL-MYERS SQUIBB COMPANY-12999991

PATIENT
  Age: 55 Year
  Sex: Male

DRUGS (5)
  1. SUSTIVA [Suspect]
     Indication: HIV INFECTION
     Route: 048
     Dates: start: 20010101
  2. EPIVIR [Suspect]
     Dates: start: 20010101
  3. VIREAD [Suspect]
     Dates: start: 20050503
  4. TAVANIC [Suspect]
     Dates: start: 20050425, end: 20050517
  5. ZERIT [Concomitant]
     Dates: end: 20050503

REACTIONS (3)
  - ARTHRITIS [None]
  - OEDEMA [None]
  - VASCULAR PURPURA [None]
